FAERS Safety Report 6205368-1 (Version None)
Quarter: 2009Q2

REPORT INFORMATION
  Report Type: 
  Country: None (occurrence: None)
  Receive Date: 20090527
  Receipt Date: 20090316
  Transmission Date: 20091009
  Serious: No
  Sender: FDA-Public Use
  Company Number: US-ABBOTT-09P-163-0563422-00

PATIENT
  Sex: Male
  Weight: 93.07 kg

DRUGS (4)
  1. SIMCOR [Suspect]
     Indication: BLOOD CHOLESTEROL INCREASED
     Dosage: 1000/40MG OR 2 TABS OF 500/20MG QD
     Route: 048
     Dates: start: 20090222, end: 20090312
  2. SIMCOR [Suspect]
     Indication: HIGH DENSITY LIPOPROTEIN DECREASED
  3. SYNTHROID [Suspect]
     Indication: HYPOTHYROIDISM
     Route: 048
     Dates: start: 20060101, end: 20090313
  4. SYNTHROID [Suspect]
     Dosage: STOPPED MEDICATION FOR 3 DAYS
     Route: 048
     Dates: start: 20090317

REACTIONS (3)
  - DYSPNOEA [None]
  - HYPERTENSION [None]
  - PALPITATIONS [None]
